FAERS Safety Report 10041058 (Version 2)
Quarter: 2014Q2

REPORT INFORMATION
  Report Type: Spontaneous
  Country: US (occurrence: US)
  Receive Date: 20140327
  Receipt Date: 20140623
  Transmission Date: 20141212
  Serious: Yes (Other)
  Sender: FDA-Public Use
  Company Number: US-BAYER-2014-044085

PATIENT
  Age: 29 Year
  Sex: Female
  Weight: 87.98 kg

DRUGS (3)
  1. MIRENA [Suspect]
     Indication: CONTRACEPTION
     Dosage: 20 MCG/24HR, CONT
     Route: 015
     Dates: start: 20120215, end: 20140324
  2. PRILOSEC [Concomitant]
     Dosage: 2 DF, QD
  3. CLARITAN [Concomitant]
     Dosage: 10 MG, QD

REACTIONS (4)
  - Abortion spontaneous [None]
  - Pregnancy with contraceptive device [None]
  - Device dislocation [None]
  - Drug ineffective [None]
